FAERS Safety Report 4802306-0 (Version None)
Quarter: 2005Q4

REPORT INFORMATION
  Report Type: 
  Country: None (occurrence: None)
  Receive Date: 20051012
  Receipt Date: 20050929
  Transmission Date: 20060501
  Serious: Yes (Hospitalization)
  Sender: FDA-Public Use
  Company Number: US-2005-020691

PATIENT
  Age: 63 Year
  Sex: Male
  Weight: 83.9 kg

DRUGS (1)
  1. GM-CSF (SARGRAMOSTIM) INJECTION [Suspect]
     Indication: MALIGNANT MELANOMA
     Dosage: 250 UG, 14 DAYS ON/14 DAYS OFF, SUBCUTANEOUS
     Route: 058
     Dates: start: 20000523, end: 20030507

REACTIONS (2)
  - ACUTE MYELOID LEUKAEMIA [None]
  - PANCYTOPENIA [None]
